FAERS Safety Report 15347539 (Version 2)
Quarter: 2018Q4

REPORT INFORMATION
  Report Type: Spontaneous
  Country: JP (occurrence: JP)
  Receive Date: 20180904
  Receipt Date: 20181121
  Transmission Date: 20190204
  Serious: Yes (Other)
  Sender: FDA-Public Use
  Company Number: JP-PFIZER INC-2018348966

PATIENT
  Age: 70 Year
  Sex: Male

DRUGS (2)
  1. INLYTA [Suspect]
     Active Substance: AXITINIB
     Indication: RENAL CELL CARCINOMA
     Dosage: UNK
     Route: 048
     Dates: start: 201807, end: 201808
  2. INLYTA [Suspect]
     Active Substance: AXITINIB
     Dosage: 3 MG, DAILY (1 MG IN THE MORING, 2 MG IN THE EVENING)
     Route: 048

REACTIONS (3)
  - Acute kidney injury [Recovered/Resolved]
  - Proteinuria [Not Recovered/Not Resolved]
  - Neoplasm progression [Unknown]

NARRATIVE: CASE EVENT DATE: 20180801
